FAERS Safety Report 9850891 (Version 2)
Quarter: 2014Q1

REPORT INFORMATION
  Report Type: Report from Study
  Country: ES (occurrence: ES)
  Receive Date: 20140128
  Receipt Date: 20140218
  Transmission Date: 20141002
  Serious: No
  Sender: FDA-Public Use
  Company Number: ES-VERTEX PHARMACEUTICALS INC-2014-000424

PATIENT
  Age: 74 Year
  Sex: Male
  Weight: 100 kg

DRUGS (7)
  1. TELAPREVIR [Suspect]
     Indication: HEPATITIS C
     Dosage: 1125 MG, BID
  2. RIBAVIRIN [Suspect]
     Indication: CHRONIC HEPATITIS C
     Dosage: DISCONTINUED AT WEEK 24
     Dates: start: 20130322, end: 20130906
  3. RIBAVIRIN [Suspect]
     Dosage: 1000 UNK, UNK
  4. PEG-INTERFERON [Suspect]
     Indication: CHRONIC HEPATITIS C
     Dosage: DISCONTINUED AT WEEK 24
     Dates: start: 20130322, end: 20130906
  5. ELTROMBOPAG [Suspect]
     Indication: THROMBOSIS PROPHYLAXIS
     Dosage: 25 MG, QD
  6. ELTROMBOPAG [Suspect]
     Dosage: 25 MG, QD
  7. ELTROMBOPAG [Suspect]
     Dosage: 25 MG, QOD

REACTIONS (5)
  - White blood cell count decreased [Recovered/Resolved]
  - Neutrophil count decreased [Recovered/Resolved]
  - Headache [Recovered/Resolved]
  - Respiratory tract infection [Recovered/Resolved]
  - Haemoglobin decreased [Recovered/Resolved]
